FAERS Safety Report 11577329 (Version 1)
Quarter: 2015Q3

REPORT INFORMATION
  Report Type: Spontaneous
  Country: RU (occurrence: RU)
  Receive Date: 20150930
  Receipt Date: 20150930
  Transmission Date: 20151125
  Serious: Yes (Other)
  Sender: FDA-Public Use
  Company Number: RU-TEVA-595903ISR

PATIENT

DRUGS (1)
  1. METHOTREXATE-TEVA [Suspect]
     Active Substance: METHOTREXATE

REACTIONS (1)
  - Cushing^s syndrome [Unknown]
